FAERS Safety Report 7320616-2 (Version None)
Quarter: 2011Q1

REPORT INFORMATION
  Report Type: 
  Country: None (occurrence: None)
  Receive Date: 20110223
  Receipt Date: 20110223
  Transmission Date: 20110831
  Serious: Yes (Life-Threatening, Hospitalization)
  Sender: FDA-Public Use
  Company Number: None

PATIENT
  Age: 70 Year
  Sex: Female
  Weight: 61.2356 kg

DRUGS (11)
  1. VITAMIN D [Concomitant]
  2. COREG [Concomitant]
  3. ASPIRIN [Concomitant]
  4. TEKTURNA [Concomitant]
  5. LEVOTHYROXINE SODIUM [Concomitant]
  6. JANUVIA [Concomitant]
  7. AVALIDE [Concomitant]
  8. SIMVASTATIN [Concomitant]
  9. CALCIUM [Concomitant]
  10. RECLAST [Suspect]
     Indication: OSTEOPENIA
     Dates: start: 20110211, end: 20110211
  11. LEVEMIR [Concomitant]

REACTIONS (2)
  - RENAL FAILURE ACUTE [None]
  - LIVER FUNCTION TEST ABNORMAL [None]
